FAERS Safety Report 14774963 (Version 1)
Quarter: 2018Q2

REPORT INFORMATION
  Report Type: Spontaneous
  Country: DE (occurrence: DE)
  Receive Date: 20180418
  Receipt Date: 20180418
  Transmission Date: 20180711
  Serious: Yes (Hospitalization)
  Sender: FDA-Public Use
  Company Number: DE-BAYER-2018-069759

PATIENT
  Age: 39 Year
  Sex: Male
  Weight: 97 kg

DRUGS (2)
  1. ACETYLSALICYLIC ACID (} 100 MG) [Suspect]
     Active Substance: ASPIRIN
     Dosage: 500 MG, PRN
     Route: 048
  2. RAMIPRIL. [Concomitant]
     Active Substance: RAMIPRIL
     Route: 048

REACTIONS (3)
  - Mucosal haemorrhage [Recovered/Resolved]
  - Hypertension [Recovered/Resolved]
  - Respiratory tract haemorrhage [Recovered/Resolved]
